FAERS Safety Report 4358875-0 (Version None)
Quarter: 2004Q2

REPORT INFORMATION
  Report Type: 
  Country: None (occurrence: None)
  Receive Date: 20040512
  Receipt Date: 20040423
  Transmission Date: 20050107
  Serious: Yes (Hospitalization)
  Sender: FDA-Public Use
  Company Number: FR_031203236

PATIENT
  Sex: Male

DRUGS (10)
  1. ALIMTA [Suspect]
     Indication: MALIGNANT NEOPLASM OF SPERMATIC CORD
     Dosage: 500 MG/M2/OTHER
     Route: 042
     Dates: start: 20030822
  2. ALIMTA [Suspect]
     Indication: MESOTHELIOMA
     Dosage: 500 MG/M2/OTHER
     Route: 042
     Dates: start: 20030822
  3. CISPLATIN [Concomitant]
  4. VITAMIN B-12 [Concomitant]
  5. FOLIC ACID [Concomitant]
  6. DEXAMETHASONE [Concomitant]
  7. PRETERAX [Concomitant]
  8. ALDALIX [Concomitant]
  9. GLYBURIDE [Concomitant]
  10. GLUCOPHAGE [Concomitant]

REACTIONS (6)
  - ANAEMIA [None]
  - FATIGUE [None]
  - PLEURAL EFFUSION [None]
  - PLEURISY [None]
  - PULMONARY GRANULOMA [None]
  - VOMITING [None]
